FAERS Safety Report 15966946 (Version 1)
Quarter: 2019Q1

REPORT INFORMATION
  Report Type: Spontaneous
  Country: US (occurrence: US)
  Receive Date: 20190215
  Receipt Date: 20190215
  Transmission Date: 20190418
  Serious: No
  Sender: FDA-Public Use
  Company Number: US-PHARMING-PHAUS2019000096

PATIENT

DRUGS (14)
  1. EPINEPHRINE. [Concomitant]
     Active Substance: EPINEPHRINE
  2. CETIRIZINE [Concomitant]
     Active Substance: CETIRIZINE HYDROCHLORIDE
  3. CLONAZEPAM. [Concomitant]
     Active Substance: CLONAZEPAM
  4. RANITIDINE. [Concomitant]
     Active Substance: RANITIDINE
  5. RUCONEST [Suspect]
     Active Substance: HUMAN C1-ESTERASE INHIBITOR
     Indication: HEREDITARY ANGIOEDEMA
     Dosage: 4200 IU, AS NEEDED
     Route: 042
     Dates: start: 20181003
  6. BIOTIN [Concomitant]
     Active Substance: BIOTIN
  7. STERILE WATER [Concomitant]
     Active Substance: WATER
  8. NORETHIN-ETH ESTRA-FERROUS FUM [Concomitant]
  9. CITALOPRAM [Concomitant]
     Active Substance: CITALOPRAM HYDROBROMIDE
  10. SODIUM CHLORIDE. [Concomitant]
     Active Substance: SODIUM CHLORIDE
  11. COLESEVELAM [Concomitant]
     Active Substance: COLESEVELAM
  12. CLONIDINE. [Concomitant]
     Active Substance: CLONIDINE
  13. TAKHZYRO [Concomitant]
     Active Substance: LANADELUMAB-FLYO
  14. DIVALPROEX SODIUM. [Concomitant]
     Active Substance: DIVALPROEX SODIUM

REACTIONS (1)
  - Hereditary angioedema [Unknown]
